FAERS Safety Report 4676704-2 (Version None)
Quarter: 2005Q2

REPORT INFORMATION
  Report Type: 
  Country: None (occurrence: None)
  Receive Date: 20050527
  Receipt Date: 20050518
  Transmission Date: 20051028
  Serious: Yes (Death)
  Sender: FDA-Public Use
  Company Number: US-ABBOTT-05P-163-0300878-00

PATIENT
  Age: 17 Month
  Sex: Male

DRUGS (6)
  1. VALPROIC ACID [Suspect]
     Indication: CONVULSION
  2. PHENYTOIN [Suspect]
     Indication: STATUS EPILEPTICUS
  3. CLONAZEPAM [Suspect]
     Indication: CONVULSION
  4. PHENOBARBITAL [Concomitant]
     Indication: STATUS EPILEPTICUS
  5. DIAZEPAM [Concomitant]
     Indication: STATUS EPILEPTICUS
  6. PARALDEHYDE [Concomitant]
     Indication: STATUS EPILEPTICUS

REACTIONS (5)
  - COMA HEPATIC [None]
  - DISSEMINATED INTRAVASCULAR COAGULATION [None]
  - HEPATITIS [None]
  - HYPOGLYCAEMIA [None]
  - JAUNDICE [None]
